FAERS Safety Report 7125230-X (Version None)
Quarter: 2010Q4

REPORT INFORMATION
  Report Type: 
  Country: None (occurrence: None)
  Receive Date: 20101129
  Receipt Date: 20101123
  Transmission Date: 20110411
  Serious: Yes (Other)
  Sender: FDA-Public Use
  Company Number: PHHO2010GB17819

PATIENT
  Sex: Male

DRUGS (2)
  1. ZOLEDRONATE T29581+SOLINJ+BM [Suspect]
     Indication: METASTASES TO BONE
     Dosage: 3.5MG
     Route: 042
     Dates: start: 20081202
  2. GOSERELIN [Concomitant]

REACTIONS (1)
  - OSTEONECROSIS OF JAW [None]
